FAERS Safety Report 6699820-2 (Version None)
Quarter: 2010Q2

REPORT INFORMATION
  Report Type: 
  Country: None (occurrence: None)
  Receive Date: 20100428
  Receipt Date: 20091109
  Transmission Date: 20101027
  Serious: No
  Sender: FDA-Public Use
  Company Number: A0835498A

PATIENT
  Age: 26 Year
  Sex: Female
  Weight: 72.7 kg

DRUGS (1)
  1. LUXIQ [Suspect]
     Route: 061
     Dates: start: 20091109

REACTIONS (1)
  - DIZZINESS [None]
